FAERS Safety Report 7319238-9 (Version None)
Quarter: 2011Q1

REPORT INFORMATION
  Report Type: 
  Country: None (occurrence: None)
  Receive Date: 20110228
  Receipt Date: 20110216
  Transmission Date: 20110831
  Serious: Yes (Hospitalization, Other)
  Sender: FDA-Public Use
  Company Number: PHFR2010IE05464

PATIENT
  Sex: Male

DRUGS (1)
  1. CLOZARIL [Suspect]
     Indication: SCHIZOPHRENIA
     Dosage: 75 MG, UNK
     Route: 048
     Dates: start: 20101108, end: 20101201

REACTIONS (12)
  - C-REACTIVE PROTEIN INCREASED [None]
  - UROSEPSIS [None]
  - REDUCED BLADDER CAPACITY [None]
  - URINARY INCONTINENCE [None]
  - HEART RATE INCREASED [None]
  - TACHYCARDIA [None]
  - EOSINOPHIL COUNT INCREASED [None]
  - URINARY TRACT INFECTION [None]
  - DIGEORGE'S SYNDROME [None]
  - WHITE BLOOD CELL COUNT INCREASED [None]
  - PYREXIA [None]
  - MALAISE [None]
